FAERS Safety Report 6627613-0 (Version None)
Quarter: 2010Q1

REPORT INFORMATION
  Report Type: 
  Country: None (occurrence: None)
  Receive Date: 20100311
  Receipt Date: 20100113
  Transmission Date: 20100710
  Serious: No
  Sender: FDA-Public Use
  Company Number: US-KINGPHARMUSA00001-K201000053

PATIENT
  Sex: Male

DRUGS (2)
  1. EMBEDA [Suspect]
     Indication: POST LAMINECTOMY SYNDROME
     Dosage: 100 MG, BID
     Route: 048
     Dates: start: 20100111, end: 20100113
  2. ROXICODONE [Concomitant]
     Dosage: UNK

REACTIONS (4)
  - DIARRHOEA [None]
  - NAUSEA [None]
  - TREMOR [None]
  - WITHDRAWAL SYNDROME [None]
